FAERS Safety Report 5223473-3 (Version None)
Quarter: 2007Q1

REPORT INFORMATION
  Report Type: 
  Country: None (occurrence: None)
  Receive Date: 20061201
  Receipt Date: 20060802
  Transmission Date: 20070707
  Serious: No
  Sender: FDA-Public Use
  Company Number: 2006PV016063

PATIENT
  Age: 66 Year
  Sex: Female
  Weight: 78.0187 kg

DRUGS (5)
  1. BYETTA [Suspect]
     Indication: DIABETES MELLITUS NON-INSULIN-DEPENDENT
     Dosage: 5 MCG;BID;SC
     Route: 058
     Dates: start: 20060601
  2. BYETTA [Suspect]
  3. NOVOLIN 50/50 [Concomitant]
  4. GLUCOTROL [Concomitant]
  5. GLUCOPHAGE [Concomitant]

REACTIONS (11)
  - BLOOD GLUCOSE DECREASED [None]
  - BLOOD GLUCOSE INCREASED [None]
  - CYSTITIS [None]
  - DECREASED APPETITE [None]
  - INJECTION SITE RASH [None]
  - NAUSEA [None]
  - PRURITUS [None]
  - RASH [None]
  - SWELLING FACE [None]
  - TINNITUS [None]
  - WEIGHT DECREASED [None]
